FAERS Safety Report 5361261-8 (Version None)
Quarter: 2007Q2

REPORT INFORMATION
  Report Type: 
  Country: None (occurrence: None)
  Receive Date: 20070614
  Receipt Date: 20070608
  Transmission Date: 20071010
  Serious: Yes (Hospitalization)
  Sender: FDA-Public Use
  Company Number: 2007-02766

PATIENT
  Age: 34 Year
  Sex: Female

DRUGS (1)
  1. MONODOX [Suspect]
     Indication: SYPHILIS
     Dosage: 300 MG, DAILY
     Dates: start: 19860101

REACTIONS (2)
  - ERYTHEMA MULTIFORME [None]
  - STEVENS-JOHNSON SYNDROME [None]
